FAERS Safety Report 5933092-9 (Version None)
Quarter: 2008Q4

REPORT INFORMATION
  Report Type: 
  Country: None (occurrence: None)
  Receive Date: 20081028
  Receipt Date: 20081017
  Transmission Date: 20090506
  Serious: Yes (Death, Other)
  Sender: FDA-Public Use
  Company Number: GB-BAXTER-2008BH001834

PATIENT
  Age: 45 Year
  Sex: Female
  Weight: 45 kg

DRUGS (16)
  1. CYCLOPHOSPHAMIDE [Suspect]
     Indication: SYSTEMIC LUPUS ERYTHEMATOSUS
     Dosage: DOSE UNIT:UNKNOWN
     Route: 048
     Dates: start: 19920101
  2. AZATHIOPRINE [Suspect]
     Indication: SYSTEMIC LUPUS ERYTHEMATOSUS
     Dosage: DOSE UNIT:UNKNOWN
     Route: 065
  3. CORTICOSTEROIDS [Suspect]
     Indication: SYSTEMIC LUPUS ERYTHEMATOSUS
     Dosage: DOSE UNIT:UNKNOWN
     Route: 065
  4. MABTHERA [Suspect]
     Indication: SYSTEMIC LUPUS ERYTHEMATOSUS
     Route: 065
     Dates: start: 20020801, end: 20051101
  5. PREDNISOLONE [Suspect]
     Indication: SYSTEMIC LUPUS ERYTHEMATOSUS
     Dosage: DOSE UNIT:UNKNOWN
     Route: 065
     Dates: start: 20020615, end: 20030615
  6. AMLODIPINE [Concomitant]
     Indication: RAYNAUD'S PHENOMENON
     Route: 048
     Dates: start: 20020615
  7. CALCICHEW D3 [Concomitant]
     Indication: OSTEOPOROSIS
     Route: 048
     Dates: start: 20030615
  8. CLARITIN [Concomitant]
     Indication: HYPERSENSITIVITY
     Route: 048
     Dates: start: 20040615
  9. FOLIC ACID [Concomitant]
     Route: 048
  10. HYDROXYCHLOROQUINE [Concomitant]
     Indication: SYSTEMIC LUPUS ERYTHEMATOSUS
     Route: 048
     Dates: start: 19820615, end: 19920615
  11. NORMAL HUMAN IMMUNOGLOBULIN [Concomitant]
  12. LEVOMEPROMAZINE [Concomitant]
     Route: 048
  13. NUVELLE [Concomitant]
     Indication: PREMATURE MENOPAUSE
     Dates: start: 19930615
  14. PROBENECID [Concomitant]
  15. THYROXIN [Concomitant]
     Indication: HYPOTHYROIDISM
     Dates: start: 19900615
  16. HYDROXYCHLOROQUINE [Concomitant]
     Route: 048
     Dates: start: 20020615

REACTIONS (18)
  - ATAXIA [None]
  - BALANCE DISORDER [None]
  - BONE MARROW TOXICITY [None]
  - CEREBELLAR SYNDROME [None]
  - CYSTITIS HAEMORRHAGIC [None]
  - DYSARTHRIA [None]
  - DYSPHAGIA [None]
  - DYSPHASIA [None]
  - GRANULOCYTOSIS [None]
  - HERPES ZOSTER [None]
  - NYSTAGMUS [None]
  - PAST-POINTING [None]
  - PNEUMONIA [None]
  - PROGRESSIVE MULTIFOCAL LEUKOENCEPHALOPATHY [None]
  - RESPIRATORY FAILURE [None]
  - RESPIRATORY TRACT INFECTION [None]
  - VISION BLURRED [None]
  - WEIGHT DECREASED [None]
